FAERS Safety Report 10076183 (Version 1)
Quarter: 2014Q2

REPORT INFORMATION
  Report Type: Spontaneous
  Country: ES (occurrence: ES)
  Receive Date: 20140414
  Receipt Date: 20140414
  Transmission Date: 20141212
  Serious: Yes (Hospitalization)
  Sender: FDA-Public Use
  Company Number: ES-009507513-1404ESP006545

PATIENT
  Age: 39 Year
  Sex: Male

DRUGS (3)
  1. RIBAVIRIN [Suspect]
     Indication: HEPATITIS C
     Dosage: 800 MG, QD
     Route: 048
  2. PEGINTERFERON ALFA-2B [Suspect]
     Indication: HEPATITIS C
     Dosage: 180 MG, QW
     Route: 030
  3. TRIZIVIR [Concomitant]
     Indication: HIV INFECTION
     Dosage: UNK UNK, Q12H

REACTIONS (2)
  - Psychotic disorder [Recovered/Resolved]
  - Somatoform disorder [Unknown]
